FAERS Safety Report 7738065-1 (Version None)
Quarter: 2011Q3

REPORT INFORMATION
  Report Type: 
  Country: None (occurrence: None)
  Receive Date: 20110908
  Receipt Date: 20110902
  Transmission Date: 20111222
  Serious: Yes (Death, Other)
  Sender: FDA-Public Use
  Company Number: US-GENZYME-CAMP-1001860

PATIENT
  Age: 76 Year
  Sex: Male

DRUGS (3)
  1. CAMPATH [Suspect]
     Indication: CHRONIC LYMPHOCYTIC LEUKAEMIA
     Dosage: 3 MG, QD
     Route: 058
     Dates: start: 20110818, end: 20110818
  2. CAMPATH [Suspect]
     Dosage: 30 MG, QD
     Route: 058
     Dates: start: 20110822, end: 20110822
  3. CAMPATH [Suspect]
     Dosage: 10 MG, QD
     Route: 058
     Dates: start: 20110820, end: 20110820

REACTIONS (2)
  - BACTERIAL TEST POSITIVE [None]
  - DEATH [None]
